FAERS Safety Report 8718344 (Version 2)
Quarter: 2012Q4

REPORT INFORMATION
  Report Type: Report from Study
  Country: US (occurrence: US)
  Receive Date: 20120810
  Receipt Date: 20120831
  Transmission Date: 20130627
  Serious: Yes (Other)
  Sender: FDA-Public Use
  Company Number: US-ABBOTT-12P-163-0965664-00

PATIENT
  Age: 40 None
  Sex: Male

DRUGS (3)
  1. ANDROGEL 1.62% [Suspect]
     Indication: TESTICULAR FAILURE
     Dates: start: 2009
  2. CORTISONE ACETATE [Concomitant]
     Indication: PRODUCT USED FOR UNKNOWN INDICATION
  3. LEVOTHYROXINE [Concomitant]
     Indication: PRODUCT USED FOR UNKNOWN INDICATION

REACTIONS (5)
  - Nuclear magnetic resonance imaging brain abnormal [Unknown]
  - Meningioma [Unknown]
  - Drug dose omission [Unknown]
  - Loss of employment [Unknown]
  - Amnesia [Unknown]
